FAERS Safety Report 7949016-9 (Version None)
Quarter: 2011Q4

REPORT INFORMATION
  Report Type: 
  Country: None (occurrence: None)
  Receive Date: 20111130
  Receipt Date: 20111118
  Transmission Date: 20120403
  Serious: Yes (Hospitalization, Other)
  Sender: FDA-Public Use
  Company Number: US-ELI_LILLY_AND_COMPANY-US201111007692

PATIENT
  Sex: Female

DRUGS (13)
  1. TEMAZEPAM [Concomitant]
  2. OXYCODONE HCL [Concomitant]
     Indication: PAIN
  3. SIMVASTATIN [Concomitant]
     Dosage: 40 MG, UNKNOWN
  4. LEVOTHYROXINE SODIUM [Concomitant]
     Dosage: 0.05MG/50MCG
  5. FORTEO [Suspect]
     Indication: OSTEOPOROSIS
     Dosage: 20 UG, QD
     Route: 065
  6. HYDROCODONE [Concomitant]
  7. PANTOPRAZOLE [Concomitant]
     Dosage: 40 MG, UNK
  8. MULTI-VITAMIN [Concomitant]
     Dosage: UNK, QD
  9. HYDROCHLOROTHIAZIDE [Concomitant]
     Dosage: 12.5 MG, UNK
  10. ACETYLSALICYLIC ACID W/CAFFEINE/SALICYLAMIDE [Concomitant]
  11. CALCIUM [Concomitant]
  12. FORTEO [Suspect]
     Dosage: 20 UG, QD
     Route: 065
  13. STOOL SOFTENER [Concomitant]

REACTIONS (15)
  - SPINAL FRACTURE [None]
  - COLITIS [None]
  - HIATUS HERNIA [None]
  - DYSPHAGIA [None]
  - OESOPHAGEAL DISORDER [None]
  - FEEDING DISORDER [None]
  - OSTEOPOROSIS [None]
  - GASTROOESOPHAGEAL REFLUX DISEASE [None]
  - NAUSEA [None]
  - ARTERIOSCLEROSIS CORONARY ARTERY [None]
  - ANEURYSM [None]
  - CONSTIPATION [None]
  - DIARRHOEA [None]
  - ABDOMINAL PAIN UPPER [None]
  - DIVERTICULITIS [None]
